FAERS Safety Report 10150389 (Version 3)
Quarter: 2014Q3

REPORT INFORMATION
  Report Type: Spontaneous
  Country: US (occurrence: US)
  Receive Date: 20140502
  Receipt Date: 20140829
  Transmission Date: 20150326
  Serious: Yes (Death, Hospitalization, Other)
  Sender: FDA-Public Use
  Company Number: US-BRISTOL-MYERS SQUIBB COMPANY-20672853

PATIENT
  Age: 88 Year
  Sex: Female

DRUGS (4)
  1. CARAFATE [Concomitant]
     Active Substance: SUCRALFATE
  2. ASPIRIN. [Concomitant]
     Active Substance: ASPIRIN
  3. PROTONIX [Concomitant]
     Active Substance: PANTOPRAZOLE SODIUM
  4. SPRYCEL [Suspect]
     Active Substance: DASATINIB
     Indication: MYELOID LEUKAEMIA
     Dosage: 16JAN2014-ONG
     Dates: start: 20131219

REACTIONS (5)
  - Respiratory arrest [Fatal]
  - Gastrointestinal haemorrhage [Unknown]
  - Malignant neoplasm progression [Unknown]
  - Pulmonary oedema [Recovered/Resolved]
  - Anaemia [Unknown]

NARRATIVE: CASE EVENT DATE: 20140415
